FAERS Safety Report 7301135-6 (Version None)
Quarter: 2011Q1

REPORT INFORMATION
  Report Type: 
  Country: None (occurrence: None)
  Receive Date: 20110218
  Receipt Date: 20110125
  Transmission Date: 20110831
  Serious: Yes (Other)
  Sender: FDA-Public Use
  Company Number: US-BAYER-2011-010202

PATIENT
  Sex: Female

DRUGS (1)
  1. MIRENA [Suspect]
     Indication: CONTRACEPTION
     Dosage: 20 ?G/D, CONT
     Route: 015
     Dates: start: 20091229, end: 20101216

REACTIONS (44)
  - SYNCOPE [None]
  - BLOOD PRESSURE SYSTOLIC INCREASED [None]
  - SWELLING FACE [None]
  - LIP SWELLING [None]
  - PYREXIA [None]
  - OCULAR ICTERUS [None]
  - RASH [None]
  - ABDOMINAL TENDERNESS [None]
  - VAGINAL HAEMORRHAGE [None]
  - DEPRESSION [None]
  - ACNE [None]
  - ARTHRALGIA [None]
  - SWOLLEN TONGUE [None]
  - GENITAL PAIN [None]
  - PAIN IN EXTREMITY [None]
  - VULVOVAGINAL SWELLING [None]
  - WEIGHT INCREASED [None]
  - DYSPNOEA [None]
  - CHEST PAIN [None]
  - VAGINAL DISCHARGE [None]
  - SKIN DISCOLOURATION [None]
  - LIBIDO DECREASED [None]
  - PRURITUS [None]
  - NAUSEA [None]
  - URTICARIA [None]
  - HYPOAESTHESIA [None]
  - DYSPAREUNIA [None]
  - ABDOMINAL PAIN [None]
  - DIZZINESS [None]
  - UPPER RESPIRATORY TRACT INFECTION [None]
  - OEDEMA MOUTH [None]
  - VISUAL IMPAIRMENT [None]
  - CHILLS [None]
  - YELLOW SKIN [None]
  - MOOD SWINGS [None]
  - HEADACHE [None]
  - NERVOUSNESS [None]
  - BACK PAIN [None]
  - HYPERSENSITIVITY [None]
  - CHEST DISCOMFORT [None]
  - BREAST MASS [None]
  - MENSTRUATION DELAYED [None]
  - PELVIC PAIN [None]
  - VOMITING [None]
